FAERS Safety Report 14774673 (Version 1)
Quarter: 2018Q2

REPORT INFORMATION
  Report Type: Spontaneous
  Country: US (occurrence: US)
  Receive Date: 20180418
  Receipt Date: 20180418
  Transmission Date: 20180711
  Serious: No
  Sender: FDA-Public Use
  Company Number: US-ASTELLAS-2017US027788

PATIENT
  Age: 62 Year
  Sex: Male

DRUGS (1)
  1. LEXISCAN [Suspect]
     Active Substance: REGADENOSON
     Indication: PRODUCT USED FOR UNKNOWN INDICATION
     Dosage: 400 ?G/5 ML, (SINGLE DOSE)
     Route: 042
     Dates: start: 20170703, end: 20170703

REACTIONS (2)
  - Injection site extravasation [Unknown]
  - Injection site pain [Unknown]

NARRATIVE: CASE EVENT DATE: 20170703
